FAERS Safety Report 5738579-X (Version None)
Quarter: 2008Q2

REPORT INFORMATION
  Report Type: 
  Country: None (occurrence: None)
  Receive Date: 20080512
  Receipt Date: 20080512
  Transmission Date: 20081010
  Serious: Yes (Hospitalization)
  Sender: FDA-Public Use
  Company Number: None

PATIENT
  Sex: Male
  Weight: 87 kg

DRUGS (3)
  1. CISPLATIN [Suspect]
     Dosage: 120 MG
  2. ERBITUX [Suspect]
     Dosage: 1500 MG
  3. CAMPTOSAR [Suspect]
     Dosage: 200 MG

REACTIONS (9)
  - ASTHENIA [None]
  - CULTURE STOOL POSITIVE [None]
  - DIARRHOEA [None]
  - FALL [None]
  - FUNGAL INFECTION [None]
  - HYPOKALAEMIA [None]
  - HYPONATRAEMIA [None]
  - INTESTINAL CYST [None]
  - PNEUMOPERITONEUM [None]
